FAERS Safety Report 13592083 (Version 2)
Quarter: 2017Q3

REPORT INFORMATION
  Report Type: Spontaneous
  Country: JP (occurrence: JP)
  Receive Date: 20170530
  Receipt Date: 20170705
  Transmission Date: 20171127
  Serious: Yes (Hospitalization, Other)
  Sender: FDA-Public Use
  Company Number: JP-JNJFOC-20170524910

PATIENT
  Age: 81 Year
  Sex: Male

DRUGS (11)
  1. EPADEL [Concomitant]
     Active Substance: ICOSAPENT
     Route: 048
  2. CRESTOR [Concomitant]
     Active Substance: ROSUVASTATIN CALCIUM
     Route: 048
  3. NEXIUM [Concomitant]
     Active Substance: ESOMEPRAZOLE MAGNESIUM
     Route: 048
  4. PLAVIX [Concomitant]
     Active Substance: CLOPIDOGREL BISULFATE
     Route: 048
  5. TRAZENTA [Concomitant]
     Active Substance: LINAGLIPTIN
     Route: 048
  6. TRAMCET [Suspect]
     Active Substance: ACETAMINOPHEN\TRAMADOL
     Indication: PRODUCT USED FOR UNKNOWN INDICATION
     Route: 048
     Dates: start: 20161102
  7. FEBURIC [Concomitant]
     Active Substance: FEBUXOSTAT
     Route: 048
  8. IRBETAN [Concomitant]
     Active Substance: IRBESARTAN
     Route: 048
  9. TOCOPHERYL ACETATE [Concomitant]
     Active Substance: .ALPHA.-TOCOPHEROL ACETATE
     Route: 048
  10. BELSOMRA [Concomitant]
     Active Substance: SUVOREXANT
     Route: 048
  11. FORXIGA [Concomitant]
     Active Substance: DAPAGLIFLOZIN
     Route: 048

REACTIONS (3)
  - Loss of consciousness [Recovered/Resolved]
  - Cerebral infarction [Recovered/Resolved]
  - Duodenal ulcer [Recovered/Resolved]

NARRATIVE: CASE EVENT DATE: 20161107
